FAERS Safety Report 24279470 (Version 1)
Quarter: 2024Q3

REPORT INFORMATION
  Report Type: Spontaneous
  Country: US (occurrence: US)
  Receive Date: 20240903
  Receipt Date: 20240903
  Transmission Date: 20241017
  Serious: No
  Sender: ABBVIE
  Company Number: US-ABBVIE-5903748

PATIENT
  Sex: Male

DRUGS (1)
  1. OZURDEX [Suspect]
     Active Substance: DEXAMETHASONE
     Indication: Retinal oedema
     Dosage: TIME INTERVAL: AS NECESSARY
     Route: 050

REACTIONS (1)
  - Corneal oedema [Not Recovered/Not Resolved]
